FAERS Safety Report 4386370-1 (Version None)
Quarter: 2004Q2

REPORT INFORMATION
  Report Type: 
  Country: None (occurrence: None)
  Receive Date: 20040623
  Receipt Date: 20040607
  Transmission Date: 20050107
  Serious: Yes (Hospitalization)
  Sender: FDA-Public Use
  Company Number: EM2004-0173

PATIENT
  Age: 2 Year
  Sex: Female
  Weight: 14 kg

DRUGS (1)
  1. TOBI [Suspect]
     Indication: PSEUDOMONAS INFECTION
     Dosage: 300 MG, TID

REACTIONS (2)
  - ANTIBIOTIC LEVEL ABOVE THERAPEUTIC [None]
  - REFUSAL OF TREATMENT BY RELATIVE [None]
